FAERS Safety Report 8322099-2 (Version None)
Quarter: 2012Q2

REPORT INFORMATION
  Report Type: 
  Country: None (occurrence: None)
  Receive Date: 20120430
  Receipt Date: 20120420
  Transmission Date: 20120825
  Serious: Yes (Other)
  Sender: FDA-Public Use
  Company Number: JP-VERTEX PHARMACEUTICALS INC.-AE-2012-003086

PATIENT
  Age: 61 Year
  Sex: Female

DRUGS (19)
  1. PEGINTERFERON ALFA-2B [Concomitant]
     Route: 058
     Dates: start: 20120213
  2. PEGINTERFERON ALFA-2B [Concomitant]
     Route: 058
     Dates: start: 20120319, end: 20120319
  3. PEGINTERFERON ALFA-2B [Concomitant]
     Route: 058
     Dates: start: 20120326
  4. TELAVIC (TELAPREVIR) [Suspect]
     Route: 048
     Dates: start: 20120130, end: 20120325
  5. REBETOL [Concomitant]
     Route: 048
     Dates: start: 20120213
  6. PEGINTERFERON ALFA-2B [Concomitant]
     Indication: HEPATITIS C
     Route: 058
     Dates: start: 20120107, end: 20120206
  7. REBETOL [Concomitant]
     Route: 048
     Dates: start: 20120130, end: 20120212
  8. REBETOL [Concomitant]
     Route: 048
     Dates: end: 20120311
  9. REBETOL [Concomitant]
     Route: 048
     Dates: start: 20120312, end: 20120318
  10. EPADEL S [Concomitant]
     Route: 048
  11. PEGINTERFERON ALFA-2B [Concomitant]
     Route: 058
     Dates: end: 20120312
  12. REBETOL [Concomitant]
     Indication: HEPATITIS C
     Route: 048
     Dates: start: 20120107, end: 20120129
  13. LIVALO [Concomitant]
     Route: 048
     Dates: end: 20120113
  14. TELAVIC (TELAPREVIR) [Suspect]
     Indication: HEPATITIS C
     Route: 048
     Dates: start: 20120107, end: 20120129
  15. EPADEL [Concomitant]
     Route: 048
  16. SLOW-K [Concomitant]
     Route: 048
  17. FEROTYM [Concomitant]
     Route: 048
  18. CLARITIN [Concomitant]
     Route: 048
  19. DOGMATYL [Concomitant]
     Route: 048

REACTIONS (4)
  - ANAEMIA [None]
  - PLATELET COUNT DECREASED [None]
  - RASH [None]
  - RENAL DISORDER [None]
